FAERS Safety Report 5958502-2 (Version None)
Quarter: 2008Q4

REPORT INFORMATION
  Report Type: 
  Country: None (occurrence: None)
  Receive Date: 20081119
  Receipt Date: 20081111
  Transmission Date: 20090506
  Serious: Yes (Other)
  Sender: FDA-Public Use
  Company Number: PHEH2006US01235

PATIENT
  Sex: Female
  Weight: 75.283 kg

DRUGS (3)
  1. ZOMETA [Suspect]
     Dosage: 4 MG IV Q3MOS
     Dates: start: 20031118, end: 20050201
  2. AREDIA [Suspect]
     Dosage: UNK, UNK
  3. ZOLOFT [Concomitant]
     Dosage: UNK, UNK

REACTIONS (17)
  - ALVEOLAR OSTEITIS [None]
  - ANXIETY [None]
  - BONE DEBRIDEMENT [None]
  - BONE DISORDER [None]
  - BONE FORMATION DECREASED [None]
  - BONE FRAGMENTATION [None]
  - DEPRESSION [None]
  - GASTROOESOPHAGEAL REFLUX DISEASE [None]
  - HERPES ZOSTER [None]
  - IMPAIRED HEALING [None]
  - MALIGNANT NEOPLASM PROGRESSION [None]
  - ORAL DISCHARGE [None]
  - ORAL SURGERY [None]
  - OSTEONECROSIS [None]
  - PAIN [None]
  - PRIMARY SEQUESTRUM [None]
  - TOOTH EXTRACTION [None]
